FAERS Safety Report 7732160-9 (Version None)
Quarter: 2011Q3

REPORT INFORMATION
  Report Type: 
  Country: None (occurrence: None)
  Receive Date: 20110906
  Receipt Date: 20110825
  Transmission Date: 20111222
  Serious: Yes (Hospitalization)
  Sender: FDA-Public Use
  Company Number: KR-PFIZER INC-2011192758

PATIENT
  Age: 71 Year
  Sex: Male
  Weight: 56.4 kg

DRUGS (9)
  1. DUTASTERIDE [Concomitant]
     Indication: DYSURIA
     Dosage: UNK
     Dates: start: 20110307
  2. ATORVASTATIN CALCIUM [Concomitant]
     Indication: HYPERTENSION
     Dosage: UNK
     Dates: start: 20070101
  3. LACTOBACILLUS ACIDOPHILUS [Concomitant]
     Indication: FAECAL INCONTINENCE
     Dosage: UNK
     Dates: start: 20110307
  4. METFORMIN [Concomitant]
     Indication: DIABETES MELLITUS
     Dosage: UNK
     Dates: start: 20101026
  5. ALUMINIUM MAGNESIUM SILICATE [Concomitant]
     Indication: FAECAL INCONTINENCE
     Dosage: UNK
     Dates: start: 20110120
  6. VOGLIBOSE [Concomitant]
     Indication: DIABETES MELLITUS
     Dosage: UNK
     Dates: start: 20070101
  7. SILODOSIN [Concomitant]
     Indication: DYSURIA
     Dosage: UNK
     Dates: start: 20100721
  8. CARVEDILOL [Concomitant]
     Indication: HYPERTENSION
     Dosage: UNK
     Dates: start: 20070101
  9. CRIZOTINIB [Suspect]
     Indication: NON-SMALL CELL LUNG CANCER
     Dosage: 250 MG, 2X/DAY
     Route: 048
     Dates: start: 20100504, end: 20110810

REACTIONS (1)
  - FEBRILE NEUTROPENIA [None]
